FAERS Safety Report 17162323 (Version 29)
Quarter: 2025Q4

REPORT INFORMATION
  Report Type: Spontaneous
  Country: GB (occurrence: GB)
  Receive Date: 20191217
  Receipt Date: 20251211
  Transmission Date: 20260118
  Serious: Yes (Other)
  Sender: ALKEM
  Company Number: None

PATIENT
  Age: 32 Year
  Sex: Female

DRUGS (24)
  1. QUETIAPINE FUMARATE [Suspect]
     Active Substance: QUETIAPINE FUMARATE
     Indication: Product used for unknown indication
     Dosage: UNK (FILM COATED TABLETS)
     Route: 048
  2. QUETIAPINE FUMARATE [Suspect]
     Active Substance: QUETIAPINE FUMARATE
     Dosage: UNK (FILM COATED TABLETS)
     Route: 048
  3. ARIPIPRAZOLE [Suspect]
     Active Substance: ARIPIPRAZOLE
     Indication: Product used for unknown indication
     Dosage: UNK (TABLET)
     Route: 065
  4. OLANZAPINE [Suspect]
     Active Substance: OLANZAPINE
     Indication: Hallucination, auditory
     Dosage: UNK
     Route: 048
  5. OLANZAPINE [Suspect]
     Active Substance: OLANZAPINE
     Dosage: UNK
     Route: 048
  6. CLOZAPINE [Suspect]
     Active Substance: CLOZAPINE
     Indication: Schizophrenia
     Dosage: UNK (TABLET)
     Route: 048
     Dates: start: 20050215
  7. CLOZAPINE [Suspect]
     Active Substance: CLOZAPINE
     Indication: Schizoaffective disorder
     Dosage: UNK, TABLET
     Route: 048
     Dates: start: 20050215, end: 20171205
  8. CLOZAPINE [Suspect]
     Active Substance: CLOZAPINE
     Dosage: UNK (TABLET)
     Route: 048
     Dates: start: 20050215
  9. CLOZAPINE [Suspect]
     Active Substance: CLOZAPINE
     Dosage: UNK (TABLET)
     Route: 048
     Dates: end: 20171205
  10. CLOZAPINE [Suspect]
     Active Substance: CLOZAPINE
     Dosage: UNK (TABLET)
     Route: 048
     Dates: end: 20171205
  11. CLOZAPINE [Suspect]
     Active Substance: CLOZAPINE
     Dosage: UNK (TABLET)
     Route: 048
     Dates: start: 20050205
  12. AMISULPRIDE [Suspect]
     Active Substance: AMISULPRIDE
     Indication: Hallucination, auditory
     Dosage: UNK (TABLET)
     Route: 065
     Dates: start: 2006
  13. AMISULPRIDE [Suspect]
     Active Substance: AMISULPRIDE
     Dosage: UNK (TABLET)
     Route: 065
     Dates: start: 2006
  14. AMISULPRIDE [Suspect]
     Active Substance: AMISULPRIDE
     Dosage: UNK (TABLET)
     Route: 065
     Dates: start: 2006
  15. ABILIFY [Suspect]
     Active Substance: ARIPIPRAZOLE
     Indication: Product used for unknown indication
     Dosage: UNK
     Route: 065
  16. CLOZARIL [Suspect]
     Active Substance: CLOZAPINE
     Indication: Product used for unknown indication
     Dosage: UNK
     Route: 065
  17. HALDOL [Suspect]
     Active Substance: HALOPERIDOL
     Indication: Hallucination, auditory
     Dosage: UNK
     Route: 065
  18. RISPERIDONE [Suspect]
     Active Substance: RISPERIDONE
     Indication: Hallucination, auditory
     Dosage: UNK
     Route: 065
  19. RISPERIDONE [Suspect]
     Active Substance: RISPERIDONE
     Dosage: UNK
     Route: 065
  20. ZUCLOPENTHIXOL [Suspect]
     Active Substance: ZUCLOPENTHIXOL
     Indication: Hallucination, auditory
     Dosage: UNK,
     Route: 065
  21. ZUCLOPENTHIXOL [Suspect]
     Active Substance: ZUCLOPENTHIXOL
     Dosage: UNK
     Route: 065
  22. ZUCLOPENTHIXOL [Suspect]
     Active Substance: ZUCLOPENTHIXOL
     Dosage: UNK
     Route: 065
  23. ZUCLOPENTHIXOL [Suspect]
     Active Substance: ZUCLOPENTHIXOL
     Dosage: UNK
     Route: 065
  24. ZUCLOPENTHIXOL [Suspect]
     Active Substance: ZUCLOPENTHIXOL
     Dosage: UNK
     Route: 065

REACTIONS (16)
  - Ocular hyperaemia [Unknown]
  - Mental impairment [Not Recovered/Not Resolved]
  - Eating disorder [Not Recovered/Not Resolved]
  - Schizophrenia [Not Recovered/Not Resolved]
  - Food poisoning [Unknown]
  - Gastroenteritis [Unknown]
  - Eosinophil count decreased [Recovered/Resolved]
  - Malaise [Not Recovered/Not Resolved]
  - Suicidal ideation [Unknown]
  - Leukopenia [Recovered/Resolved]
  - Neutropenia [Recovered/Resolved]
  - Drug abuse [Unknown]
  - Intentional product misuse [Unknown]
  - Product use in unapproved indication [Unknown]
  - Drug ineffective [Unknown]
  - Medication error [Unknown]

NARRATIVE: CASE EVENT DATE: 20170101
